FAERS Safety Report 4384215-7 (Version None)
Quarter: 2004Q2

REPORT INFORMATION
  Report Type: 
  Country: None (occurrence: None)
  Receive Date: 20040614
  Receipt Date: 20040216
  Transmission Date: 20050107
  Serious: Yes (Other)
  Sender: FDA-Public Use
  Company Number: 2004197243US

PATIENT

DRUGS (2)
  1. ZYVOX [Suspect]
  2. CUBICIN [Suspect]

REACTIONS (1)
  - WHITE BLOOD CELL COUNT DECREASED [None]
